FAERS Safety Report 24603157 (Version 1)
Quarter: 2024Q4

REPORT INFORMATION
  Report Type: Spontaneous
  Country: US (occurrence: None)
  Receive Date: 20241108
  Receipt Date: 20241108
  Transmission Date: 20250115
  Serious: Yes (Other)
  Sender: Public
  Company Number: None

PATIENT
  Age: 63 Year
  Sex: Male

DRUGS (11)
  1. LENALIDOMIDE [Suspect]
     Active Substance: LENALIDOMIDE
     Indication: Plasma cell myeloma in remission
     Dosage: FREQ: TAKE 1 CAPSULE BY MOUTH EVERY MORNING
     Route: 048
     Dates: start: 20240427
  2. ASPIRIN [Concomitant]
     Active Substance: ASPIRIN
  3. CALCIUM 600 TAB +D [Concomitant]
  4. CYCLOBENZAPRINE [Concomitant]
     Active Substance: CYCLOBENZAPRINE
  5. DEXAMETHASONE [Concomitant]
     Active Substance: DEXAMETHASONE
  6. LOPERAMIDE [Concomitant]
     Active Substance: LOPERAMIDE
  7. MAGOX [Concomitant]
  8. METOPROLOL TARTRATE [Concomitant]
     Active Substance: METOPROLOL TARTRATE
  9. TAMSULOSIN [Concomitant]
     Active Substance: TAMSULOSIN
  10. VALACYCLOVIR [Concomitant]
     Active Substance: VALACYCLOVIR HYDROCHLORIDE
  11. ZOLEDRONIC [Concomitant]
     Active Substance: ZOLEDRONIC ACID

REACTIONS (8)
  - Kidney infection [None]
  - Therapy interrupted [None]
  - Condition aggravated [None]
  - Arthralgia [None]
  - Pain in extremity [None]
  - Arthralgia [None]
  - Loss of personal independence in daily activities [None]
  - Arthralgia [None]

NARRATIVE: CASE EVENT DATE: 20240501
